FAERS Safety Report 8828908 (Version 2)
Quarter: 2014Q3

REPORT INFORMATION
  Report Type: Report from Study
  Country: US (occurrence: US)
  Receive Date: 20121008
  Receipt Date: 20140909
  Transmission Date: 20150326
  Serious: Yes (Death, Hospitalization, Other)
  Sender: FDA-Public Use
  Company Number: US-ROCHE-1130697

PATIENT
  Sex: Female

DRUGS (5)
  1. FLUDARABINE [Suspect]
     Active Substance: FLUDARABINE PHOSPHATE
     Indication: PRODUCT USED FOR UNKNOWN INDICATION
     Route: 065
  2. CHLORAMBUCIL [Suspect]
     Active Substance: CHLORAMBUCIL
     Indication: PRODUCT USED FOR UNKNOWN INDICATION
     Route: 065
  3. RITUXAN [Suspect]
     Active Substance: RITUXIMAB
     Indication: WALDENSTROM^S MACROGLOBULINAEMIA
     Dosage: PATIENT HAD ONE DOSE (750MG) SPLIT INTO TWO DAYS.
     Route: 042
     Dates: start: 20000522
  4. RITUXAN [Suspect]
     Active Substance: RITUXIMAB
     Dosage: PATIENT HAD ONE DOSE (750MG) SPLIT INTO TWO DAYS.
     Route: 042
     Dates: start: 20000523
  5. DEXAMETHASONE. [Concomitant]
     Active Substance: DEXAMETHASONE

REACTIONS (6)
  - Thrombocytopenia [Unknown]
  - Pneumonia [Unknown]
  - Death [Fatal]
  - Acute myeloid leukaemia [Unknown]
  - Haematoma [Unknown]
  - Off label use [Unknown]
